FAERS Safety Report 25534303 (Version 1)
Quarter: 2025Q3

REPORT INFORMATION
  Report Type: Spontaneous
  Country: US (occurrence: US)
  Receive Date: 20250709
  Receipt Date: 20250709
  Transmission Date: 20251020
  Serious: Yes (Other)
  Sender: AMGEN
  Company Number: US-AMGEN-USASP2025131015

PATIENT
  Sex: Female

DRUGS (31)
  1. OTEZLA [Suspect]
     Active Substance: APREMILAST
     Indication: Psoriatic arthropathy
     Dosage: 30 MILLIGRAM, BID
     Route: 048
     Dates: start: 20240822
  2. CORLANOR [Suspect]
     Active Substance: IVABRADINE HYDROCHLORIDE
     Indication: Psoriatic arthropathy
     Dosage: 5 MILLIGRAM, BID
     Route: 048
  3. PREDNISONE [Suspect]
     Active Substance: PREDNISONE
     Indication: Asthma
     Dosage: 20 MILLIGRAM, QD
     Route: 048
  4. PREDNISONE [Suspect]
     Active Substance: PREDNISONE
     Indication: Fibromyalgia
  5. TEZSPIRE [Suspect]
     Active Substance: TEZEPELUMAB-EKKO
     Indication: Product used for unknown indication
     Dosage: 30 MILLIGRAM, BID
     Route: 048
  6. ZOVIRAX [Concomitant]
     Active Substance: ACYCLOVIR
     Route: 048
  7. ALBUTEROL [Concomitant]
     Active Substance: ALBUTEROL
     Indication: Asthma
     Route: 048
  8. XANAX [Concomitant]
     Active Substance: ALPRAZOLAM
     Indication: Anxiety
     Route: 048
  9. CELEBREX [Concomitant]
     Active Substance: CELECOXIB
     Dosage: 100 MILLIGRAM, BID
     Route: 048
  10. CLINDAMYCIN [Concomitant]
     Active Substance: CLINDAMYCIN
     Dosage: 150 MILLIGRAM, BID
     Route: 048
  11. TEMOVATE [Concomitant]
     Active Substance: CLOBETASOL PROPIONATE
     Route: 048
  12. CLONAZEPAM [Concomitant]
     Active Substance: CLONAZEPAM
     Route: 048
  13. EPIPEN [Concomitant]
     Active Substance: EPINEPHRINE
     Indication: Anaphylactic reaction
     Route: 048
  14. NEXIUM [Concomitant]
     Active Substance: ESOMEPRAZOLE MAGNESIUM
     Route: 048
  15. COZAAR [Concomitant]
     Active Substance: LOSARTAN POTASSIUM
     Route: 048
  16. BACTROBAN [Concomitant]
     Active Substance: MUPIROCIN CALCIUM
     Route: 048
  17. ZOFRAN ODT [Concomitant]
     Active Substance: ONDANSETRON HYDROCHLORIDE
     Route: 048
  18. ACETAMINOPHEN [Concomitant]
     Active Substance: ACETAMINOPHEN
     Indication: Product used for unknown indication
     Route: 048
  19. America [Concomitant]
     Indication: Product used for unknown indication
     Route: 048
  20. BACTROBAN [Concomitant]
     Active Substance: MUPIROCIN CALCIUM
     Route: 048
  21. DUPIXENT [Concomitant]
     Active Substance: DUPILUMAB
     Route: 048
  22. FASENRA [Concomitant]
     Active Substance: BENRALIZUMAB
     Route: 048
     Dates: start: 2018
  23. LASIX [Concomitant]
     Active Substance: FUROSEMIDE
     Dosage: 40 MILLIGRAM, QD
     Route: 048
  24. MOUNJARO [Concomitant]
     Active Substance: TIRZEPATIDE
     Route: 058
  25. PENICILLIN [Concomitant]
     Active Substance: PENICILLIN
     Route: 048
  26. TRAMADOL [Concomitant]
     Active Substance: TRAMADOL
     Route: 048
  27. TREMFYA [Concomitant]
     Active Substance: GUSELKUMAB
     Route: 048
  28. VALTREX [Concomitant]
     Active Substance: VALACYCLOVIR HYDROCHLORIDE
     Dosage: 50 MILLIGRAM, QD
  29. VITAMIN B12 [Concomitant]
     Active Substance: CYANOCOBALAMIN
     Route: 048
  30. ZOFRAN [Concomitant]
     Active Substance: ONDANSETRON HYDROCHLORIDE
     Route: 048
  31. STELARA [Concomitant]
     Active Substance: USTEKINUMAB

REACTIONS (48)
  - Meningioma [Not Recovered/Not Resolved]
  - Neuromyopathy [Unknown]
  - Peptic ulcer [Unknown]
  - Major depression [Unknown]
  - Cardiac failure chronic [Unknown]
  - Type 2 diabetes mellitus [Unknown]
  - Rheumatoid arthritis [Recovered/Resolved]
  - Diverticulitis [Unknown]
  - Bipolar disorder [Unknown]
  - Asthma [Unknown]
  - Musculoskeletal chest pain [Unknown]
  - Pain in extremity [Unknown]
  - Carpal tunnel syndrome [Unknown]
  - Chest discomfort [Unknown]
  - COVID-19 [Recovered/Resolved]
  - Tachycardia [Unknown]
  - Intervertebral disc disorder [Unknown]
  - Bronchitis chronic [Unknown]
  - Coronary artery disease [Unknown]
  - Fibromyalgia [Unknown]
  - Electrocardiogram abnormal [Unknown]
  - Rhinitis allergic [Unknown]
  - Anaemia [Unknown]
  - Coagulopathy [Unknown]
  - Chronic obstructive pulmonary disease [Unknown]
  - Uterine leiomyoma [Unknown]
  - Gastrooesophageal reflux disease [Unknown]
  - Headache [Unknown]
  - Hypertension [Unknown]
  - Liver disorder [Unknown]
  - Obesity [Unknown]
  - Urinary tract infection [Unknown]
  - Visual impairment [Unknown]
  - Weight decreased [Unknown]
  - Peroneal nerve palsy [Unknown]
  - Endometriosis [Unknown]
  - Hypersensitivity [Unknown]
  - Goitre [Unknown]
  - Hypocalcaemia [Unknown]
  - Irritable bowel syndrome [Unknown]
  - Osteoporosis [Unknown]
  - Post-traumatic stress disorder [Unknown]
  - Sinusitis [Unknown]
  - Trigger finger [Unknown]
  - Vitamin B12 deficiency [Unknown]
  - Vitamin D deficiency [Unknown]
  - Anxiety [Unknown]
  - Pulmonary mass [Unknown]
